FAERS Safety Report 10213588 (Version 1)
Quarter: 2014Q2

REPORT INFORMATION
  Report Type: Other
  Country: IN (occurrence: IN)
  Receive Date: 20140603
  Receipt Date: 20140603
  Transmission Date: 20141212
  Serious: Yes (Hospitalization)
  Sender: FDA-Public Use
  Company Number: IN-LUPIN PHARMACEUTICALS INC.-2014-00990

PATIENT
  Age: 80 Year
  Sex: Male

DRUGS (8)
  1. RIFAMPICIN 600MG [Suspect]
     Indication: TUBERCULOSIS
     Route: 065
  2. ISONIAZID [Concomitant]
     Indication: TUBERCULOSIS
     Route: 065
  3. ISONIAZID [Concomitant]
     Route: 065
  4. ISONIAZID [Concomitant]
     Route: 065
  5. PYRAZINAMIDE 1500MG [Concomitant]
     Indication: TUBERCULOSIS
     Route: 065
  6. PYRAZINAMIDE 1500MG [Concomitant]
     Route: 065
  7. ETHAMBUTOL 1200MG [Concomitant]
     Indication: TUBERCULOSIS
     Route: 065
  8. ETHAMBUTOL 1200MG [Concomitant]
     Route: 065

REACTIONS (1)
  - Thrombocytopenia [Recovered/Resolved]
